FAERS Safety Report 10192598 (Version 1)
Quarter: 2014Q2

REPORT INFORMATION
  Report Type: Spontaneous
  Country: US (occurrence: US)
  Receive Date: 20140523
  Receipt Date: 20140523
  Transmission Date: 20141212
  Serious: No
  Sender: FDA-Public Use
  Company Number: US-ASTRAZENECA-2013SE75752

PATIENT
  Age: 19 Year
  Sex: Male
  Weight: 69.4 kg

DRUGS (3)
  1. PULMICORT FLEXHALER [Suspect]
     Indication: COUGH
     Route: 055
     Dates: start: 20131006, end: 20131008
  2. PULMICORT FLEXHALER [Suspect]
     Indication: ASTHMA
     Route: 055
     Dates: start: 20131006, end: 20131008
  3. AZITHROMYCIN [Concomitant]

REACTIONS (5)
  - Palpitations [Unknown]
  - Memory impairment [Unknown]
  - Insomnia [Unknown]
  - Off label use [Unknown]
  - Drug dose omission [Unknown]
